FAERS Safety Report 8385152-3 (Version None)
Quarter: 2012Q2

REPORT INFORMATION
  Report Type: 
  Country: None (occurrence: None)
  Receive Date: 20120524
  Receipt Date: 20120522
  Transmission Date: 20120825
  Serious: Yes (Other)
  Sender: FDA-Public Use
  Company Number: FR-AMGEN-FRASP2012032132

PATIENT
  Age: 58 Year
  Sex: Female

DRUGS (2)
  1. ANTINEOPLASTIC AGENTS [Concomitant]
     Indication: ACUTE LYMPHOCYTIC LEUKAEMIA
  2. NEULASTA [Suspect]
     Indication: CHEMOTHERAPY

REACTIONS (1)
  - MYELOCYTOSIS [None]
